FAERS Safety Report 14014597 (Version 2)
Quarter: 2017Q4

REPORT INFORMATION
  Report Type: Report from Study
  Country: US (occurrence: US)
  Receive Date: 20170927
  Receipt Date: 20171016
  Transmission Date: 20180321
  Serious: No
  Sender: FDA-Public Use
  Company Number: US-AMGEN-USASL2017145623

PATIENT
  Age: 48 Year
  Sex: Female

DRUGS (5)
  1. ENBREL [Suspect]
     Active Substance: ETANERCEPT
     Indication: PSORIATIC ARTHROPATHY
     Dosage: 50 MG, QWK (EVERY 9 TO 10 DAYS)
     Route: 065
     Dates: start: 201511
  2. BENADRYL [Suspect]
     Active Substance: DIPHENHYDRAMINE HYDROCHLORIDE
     Indication: PERIPHERAL SWELLING
     Dosage: UNK
     Route: 065
  3. PREDNISONE. [Suspect]
     Active Substance: PREDNISONE
     Indication: EAR PAIN
  4. PREDNISONE. [Suspect]
     Active Substance: PREDNISONE
     Indication: PERIPHERAL SWELLING
     Dosage: UNK
     Route: 065
  5. ENBREL [Suspect]
     Active Substance: ETANERCEPT
     Dosage: 50 MG, QWK, STRETCHED IT OUT TO TEN DAYS
     Route: 065

REACTIONS (16)
  - Throat irritation [Not Recovered/Not Resolved]
  - Malaise [Not Recovered/Not Resolved]
  - Pruritus [Not Recovered/Not Resolved]
  - Chest pain [Not Recovered/Not Resolved]
  - Influenza like illness [Unknown]
  - Skin exfoliation [Not Recovered/Not Resolved]
  - Infection [Unknown]
  - Peripheral swelling [Unknown]
  - Pain [Not Recovered/Not Resolved]
  - Rash [Not Recovered/Not Resolved]
  - Candida infection [Unknown]
  - Arthralgia [Unknown]
  - Off label use [Unknown]
  - Sinus disorder [Unknown]
  - Ear pain [Unknown]
  - Urticaria [Unknown]
